FAERS Safety Report 25206828 (Version 1)
Quarter: 2025Q2

REPORT INFORMATION
  Report Type: Report from Study
  Country: US (occurrence: US)
  Receive Date: 20250417
  Receipt Date: 20250417
  Transmission Date: 20250717
  Serious: Yes (Other)
  Sender: EMD SERONO INC
  Company Number: US-Merck Healthcare KGaA-2025017658

PATIENT
  Sex: Female

DRUGS (1)
  1. MAVENCLAD [Suspect]
     Active Substance: CLADRIBINE
     Indication: Multiple sclerosis

REACTIONS (7)
  - Myocardial infarction [Unknown]
  - Emphysema [Unknown]
  - Fall [Unknown]
  - Compression fracture [Unknown]
  - Osteoporosis [Unknown]
  - Condition aggravated [Unknown]
  - Anxiety [Unknown]
